FAERS Safety Report 25257868 (Version 1)
Quarter: 2025Q2

REPORT INFORMATION
  Report Type: Spontaneous
  Country: US (occurrence: None)
  Receive Date: 20250430
  Receipt Date: 20250430
  Transmission Date: 20250716
  Serious: No
  Sender: AXSOME THERAPEUTICS, INC.
  Company Number: US-Axsome Therapeutics, Inc.-AXS202503-000447

PATIENT

DRUGS (1)
  1. AUVELITY [Suspect]
     Active Substance: BUPROPION HYDROCHLORIDE\DEXTROMETHORPHAN HYDROBROMIDE
     Indication: Bipolar disorder
     Route: 065

REACTIONS (7)
  - Withdrawal syndrome [Unknown]
  - Off label use [Unknown]
  - Product use issue [Unknown]
  - Inability to afford medication [Unknown]
  - Insurance issue [Unknown]
  - Drug effective for unapproved indication [Unknown]
  - Therapy interrupted [Unknown]
